FAERS Safety Report 6160795-6 (Version None)
Quarter: 2009Q2

REPORT INFORMATION
  Report Type: 
  Country: None (occurrence: None)
  Receive Date: 20090420
  Receipt Date: 20090420
  Transmission Date: 20091009
  Serious: Yes (Hospitalization)
  Sender: FDA-Public Use
  Company Number: PHHO2006IT13710

PATIENT
  Sex: Female
  Weight: 73 kg

DRUGS (7)
  1. CGS 20267 T30748+ [Suspect]
     Indication: BREAST CANCER
     Dosage: 2.5 MG, QD
     Route: 048
     Dates: end: 20060710
  2. TAMOXIFEN CITRATE [Suspect]
     Dosage: 20 MG, QD- 2 YEARS
     Dates: start: 20010710
  3. INSULIN [Concomitant]
  4. FEMPRESS [Concomitant]
  5. INDERAL [Concomitant]
  6. APLACTIN [Concomitant]
  7. TAPAZOLE [Concomitant]

REACTIONS (2)
  - POLYPECTOMY [None]
  - UTERINE POLYP [None]
